FAERS Safety Report 8186946-X (Version None)
Quarter: 2012Q1

REPORT INFORMATION
  Report Type: 
  Country: None (occurrence: None)
  Receive Date: 20120302
  Receipt Date: 20120222
  Transmission Date: 20120608
  Serious: Yes (Other)
  Sender: FDA-Public Use
  Company Number: TPA2011A08515

PATIENT
  Age: 89 Year
  Sex: Male
  Weight: 77.1115 kg

DRUGS (1)
  1. ACTOS [Suspect]
     Indication: TYPE 2 DIABETES MELLITUS
     Dosage: 15 MG, 1 IN 1 D, ORAL
     Route: 048
     Dates: start: 20080801, end: 20111101

REACTIONS (1)
  - BLADDER TRANSITIONAL CELL CARCINOMA [None]
